FAERS Safety Report 4978155-X (Version None)
Quarter: 2006Q2

REPORT INFORMATION
  Report Type: 
  Country: None (occurrence: None)
  Receive Date: 20060417
  Receipt Date: 20060412
  Transmission Date: 20061013
  Serious: Yes (Hospitalization)
  Sender: FDA-Public Use
  Company Number: SU-2006-004835

PATIENT
  Age: 55 Year
  Sex: Female

DRUGS (1)
  1. BENICAR [Suspect]
     Indication: DRUG USE FOR UNKNOWN INDICATION
     Dosage: 40 MG PO
     Route: 048

REACTIONS (3)
  - HYPOTENSION [None]
  - OEDEMA PERIPHERAL [None]
  - PITTING OEDEMA [None]
